FAERS Safety Report 16654000 (Version 1)
Quarter: 2019Q3

REPORT INFORMATION
  Report Type: Report from Study
  Country: US (occurrence: US)
  Receive Date: 20190731
  Receipt Date: 20190731
  Transmission Date: 20191004
  Serious: Yes (Other)
  Sender: FDA-Public Use
  Company Number: US-GILEAD-2019-0398617

PATIENT
  Age: 29 Year
  Sex: Male
  Weight: 82.7 kg

DRUGS (42)
  1. ONDANSETRON [Concomitant]
     Active Substance: ONDANSETRON
     Dosage: 8,MG,OTHER
     Route: 042
     Dates: start: 20190310, end: 20190310
  2. ONDANSETRON [Concomitant]
     Active Substance: ONDANSETRON
     Dosage: 8,MG,OTHER
     Route: 048
     Dates: start: 20190311, end: 20190313
  3. SODIUM CHLORIDE 0.9% [Concomitant]
     Active Substance: SODIUM CHLORIDE
     Dosage: 250,ML,ONCE
     Route: 042
     Dates: start: 20190312, end: 20190312
  4. ALLOPURINOL. [Concomitant]
     Active Substance: ALLOPURINOL
     Dosage: 300,MG,DAILY
     Route: 048
     Dates: start: 20190307, end: 20190318
  5. ONDANSETRON [Concomitant]
     Active Substance: ONDANSETRON
     Dosage: 4,MG,ONCE
     Route: 042
     Dates: start: 20190218, end: 20190318
  6. SODIUM CHLORIDE 0.9% [Concomitant]
     Active Substance: SODIUM CHLORIDE
     Dosage: 500,ML,ONCE
     Route: 042
     Dates: start: 20190310, end: 20190310
  7. SODIUM CHLORIDE 0.9% [Concomitant]
     Active Substance: SODIUM CHLORIDE
     Dosage: 500,ML,ONCE
     Route: 042
     Dates: start: 20190323, end: 20190323
  8. ACETAMINOPHEN. [Concomitant]
     Active Substance: ACETAMINOPHEN
     Dosage: 650,MG,OTHER
     Route: 048
     Dates: start: 20190316, end: 20190321
  9. LACTATED RINGERS SOLUTION [Concomitant]
     Active Substance: CALCIUM CHLORIDE\POTASSIUM CHLORIDE\SODIUM CHLORIDE\SODIUM LACTATE
     Dosage: 500,ML,ONCE
     Route: 042
     Dates: start: 20190316, end: 20190316
  10. SODIUM CHLORIDE 0.9% [Concomitant]
     Active Substance: SODIUM CHLORIDE
     Dosage: 500,ML,ONCE
     Route: 042
     Dates: start: 20190313, end: 20190313
  11. LORAZEPAM. [Concomitant]
     Active Substance: LORAZEPAM
     Dosage: 0.5,MG,OTHER
     Route: 048
     Dates: start: 20190308, end: 20190310
  12. KEPPRA [Concomitant]
     Active Substance: LEVETIRACETAM
     Dosage: 500,MG,TWICE DAILY
     Route: 048
     Dates: start: 20190312, end: 20190324
  13. POTASSIUM CHLORIDE. [Concomitant]
     Active Substance: POTASSIUM CHLORIDE
     Dosage: 20,OTHER,OTHER
     Route: 042
     Dates: start: 20190317, end: 20190317
  14. FLUCONAZOLE. [Concomitant]
     Active Substance: FLUCONAZOLE
     Dosage: 400,MG,DAILY
     Route: 048
     Dates: start: 20190312, end: 20190321
  15. COLACE [Concomitant]
     Active Substance: DOCUSATE SODIUM
     Dosage: 100,MG,TWICE DAILY
     Route: 048
     Dates: start: 20190314, end: 20190321
  16. ACYCLOVIR [ACICLOVIR] [Concomitant]
     Active Substance: ACYCLOVIR
     Dosage: 800,MG,TWICE DAILY
     Route: 048
     Dates: start: 20190307, end: 20190308
  17. CEFAZOLIN [Concomitant]
     Active Substance: CEFAZOLIN
     Dosage: 1,G,ONCE
     Route: 042
     Dates: start: 20190311, end: 20190311
  18. LACTATED RINGERS SOLUTION [Concomitant]
     Active Substance: CALCIUM CHLORIDE\POTASSIUM CHLORIDE\SODIUM CHLORIDE\SODIUM LACTATE
     Dosage: 1000,ML,ONCE
     Route: 042
     Dates: start: 20190320, end: 20190320
  19. POTASSIUM CHLORIDE. [Concomitant]
     Active Substance: POTASSIUM CHLORIDE
     Dosage: 20,OTHER,ONCE
     Route: 048
     Dates: start: 20190321, end: 20190321
  20. GRANIX [Concomitant]
     Active Substance: TBO-FILGRASTIM
     Dosage: 300,OTHER,ONCE
     Route: 058
     Dates: start: 20190401, end: 20190401
  21. AXICABTAGENE CILOLEUCEL [Suspect]
     Active Substance: AXICABTAGENE CILOLEUCEL
     Indication: DIFFUSE LARGE B-CELL LYMPHOMA
     Dosage: 68 ML, ONCE
     Route: 042
     Dates: start: 20190312, end: 20190312
  22. CYCLOPHOSPHAMIDE. [Suspect]
     Active Substance: CYCLOPHOSPHAMIDE
     Indication: BONE MARROW CONDITIONING REGIMEN
     Dosage: 1000 MG, QD
     Route: 042
     Dates: start: 20190307, end: 20190309
  23. SODIUM CHLORIDE 0.9% [Concomitant]
     Active Substance: SODIUM CHLORIDE
     Dosage: 500,ML,ONCE
     Route: 042
     Dates: start: 20190315, end: 20190315
  24. SODIUM CHLORIDE 0.9% [Concomitant]
     Active Substance: SODIUM CHLORIDE
     Dosage: 500,ML,ONCE
     Route: 042
     Dates: start: 20190317, end: 20190317
  25. BACTRIM [Concomitant]
     Active Substance: SULFAMETHOXAZOLE\TRIMETHOPRIM
     Dosage: 1,OTHER,TWICE DAILY
     Route: 048
     Dates: start: 20190309, end: 20190310
  26. ACETAMINOPHEN. [Concomitant]
     Active Substance: ACETAMINOPHEN
     Dosage: 350,MG,ONCE
     Route: 048
     Dates: start: 20190312, end: 20190312
  27. BENZONATATE. [Concomitant]
     Active Substance: BENZONATATE
     Dosage: 100,MG,OTHER
     Route: 048
     Dates: start: 20190320, end: 20190321
  28. SULFAMETHOXAZOLE AND TRIMETHOPRIM [Concomitant]
     Active Substance: SULFAMETHOXAZOLE\TRIMETHOPRIM
     Dosage: 800-160,MG,OTHER
     Route: 048
     Dates: start: 20190608
  29. SODIUM CHLORIDE 0.9% [Concomitant]
     Active Substance: SODIUM CHLORIDE
     Dosage: 500,ML,ONCE
     Route: 042
     Dates: start: 20190218, end: 20190218
  30. SODIUM CHLORIDE 0.9% [Concomitant]
     Active Substance: SODIUM CHLORIDE
     Dosage: 1000,ML,DAILY
     Route: 042
     Dates: start: 20190307, end: 20190309
  31. LEVOFLOXACIN. [Concomitant]
     Active Substance: LEVOFLOXACIN
     Dosage: 500,MG,DAILY
     Route: 048
     Dates: start: 20190312, end: 20190317
  32. LEVOFLOXACIN. [Concomitant]
     Active Substance: LEVOFLOXACIN
     Dosage: 500,MG,DAILY
     Route: 048
     Dates: start: 20190321, end: 20190321
  33. SENNOSIDES. [Concomitant]
     Active Substance: SENNOSIDES
     Dosage: 17.2,MG,DAILY
     Route: 048
     Dates: start: 20190314, end: 20190318
  34. MIRALAX [Concomitant]
     Active Substance: POLYETHYLENE GLYCOL 3350
     Dosage: 17,G,ONCE
     Route: 048
     Dates: start: 20190317, end: 20190317
  35. GRANIX [Concomitant]
     Active Substance: TBO-FILGRASTIM
     Dosage: 180,OTHER,DAILY
     Route: 058
     Dates: start: 20190318, end: 20190321
  36. FLUDARABINE [Suspect]
     Active Substance: FLUDARABINE PHOSPHATE
     Indication: BONE MARROW CONDITIONING REGIMEN
     Dosage: 60 MG, QD
     Route: 042
     Dates: start: 20190307, end: 20190309
  37. ONDANSETRON [Concomitant]
     Active Substance: ONDANSETRON
     Dosage: 16,MG,DAILY
     Route: 048
     Dates: start: 20190307, end: 20190309
  38. ACYCLOVIR [ACICLOVIR] [Concomitant]
     Active Substance: ACYCLOVIR
     Dosage: 800,MG,TWICE DAILY
     Route: 048
     Dates: start: 20190311, end: 20190324
  39. DIPHENHYDRAMINE. [Concomitant]
     Active Substance: DIPHENHYDRAMINE
     Dosage: 25025,MG,ONCE
     Route: 048
     Dates: start: 20190312, end: 20190312
  40. ENOXAPARIN [Concomitant]
     Active Substance: ENOXAPARIN
     Dosage: 40,MG,DAILY
     Route: 058
     Dates: start: 20190312, end: 20190320
  41. POTASSIUM CHLORIDE. [Concomitant]
     Active Substance: POTASSIUM CHLORIDE
     Dosage: 20,OTHER,ONCE
     Route: 042
     Dates: start: 20190318, end: 20190318
  42. GRANIX [Concomitant]
     Active Substance: TBO-FILGRASTIM
     Dosage: 480,OTHER,ONCE
     Route: 058
     Dates: start: 20190503, end: 20190503

REACTIONS (5)
  - Febrile neutropenia [Recovered/Resolved]
  - Cytokine release syndrome [Recovered/Resolved]
  - Neutrophil count decreased [Not Recovered/Not Resolved]
  - Headache [Recovered/Resolved]
  - Pyrexia [Recovered/Resolved]

NARRATIVE: CASE EVENT DATE: 20190316
